FAERS Safety Report 10971284 (Version 2)
Quarter: 2015Q3

REPORT INFORMATION
  Report Type: Spontaneous
  Country: IT (occurrence: IT)
  Receive Date: 20150331
  Receipt Date: 20150813
  Transmission Date: 20151125
  Serious: Yes (Hospitalization, Other)
  Sender: FDA-Public Use
  Company Number: IT-PFIZER INC-2015109977

PATIENT
  Age: 77 Year
  Sex: Male

DRUGS (3)
  1. CAPTOPRIL/HYDROCHLOROTHIAZIDE [Suspect]
     Active Substance: CAPTOPRIL\HYDROCHLOROTHIAZIDE
     Indication: HYPERTENSION
     Dosage: 75 MG, 1X/DAY
     Route: 048
     Dates: start: 20130101, end: 20150301
  2. FINASTERIDE. [Concomitant]
     Active Substance: FINASTERIDE
     Dosage: UNK
  3. AMLODIPINE BESILATE [Suspect]
     Active Substance: AMLODIPINE BESYLATE
     Indication: HYPERTENSION
     Dosage: 10 MG, 1X/DAY
     Route: 048
     Dates: start: 20130101, end: 20150301

REACTIONS (8)
  - Cognitive disorder [Recovering/Resolving]
  - Vertigo [Recovering/Resolving]
  - Presyncope [Recovering/Resolving]
  - Clonic convulsion [Recovering/Resolving]
  - Psychomotor skills impaired [Unknown]
  - Bradycardia [Unknown]
  - Bladder sphincter atony [Recovering/Resolving]
  - Hypotension [Unknown]

NARRATIVE: CASE EVENT DATE: 20150301
